FAERS Safety Report 6054375-0 (Version None)
Quarter: 2009Q1

REPORT INFORMATION
  Report Type: 
  Country: None (occurrence: None)
  Receive Date: 20090123
  Receipt Date: 20090123
  Transmission Date: 20090719
  Serious: Yes (Hospitalization, Other)
  Sender: FDA-Public Use
  Company Number: None

PATIENT
  Age: 89 Year
  Sex: Female
  Weight: 56.7 kg

DRUGS (2)
  1. MEROPENEM  1 GRAM / 10 ML ASTRA ZENECA [Suspect]
     Indication: EVIDENCE BASED TREATMENT
     Dosage: 1 G Q12H IV
     Route: 042
     Dates: start: 20090109, end: 20090119
  2. VANCOMYCIN [Suspect]
     Indication: CLOSTRIDIAL INFECTION
     Dosage: 250 Q6H PO
     Route: 048
     Dates: start: 20090109, end: 20090119

REACTIONS (1)
  - STEVENS-JOHNSON SYNDROME [None]
